FAERS Safety Report 9302699 (Version 1)
Quarter: 2013Q2

REPORT INFORMATION
  Report Type: Spontaneous
  Country: JP (occurrence: JP)
  Receive Date: 20130522
  Receipt Date: 20130522
  Transmission Date: 20140414
  Serious: Yes (Hospitalization, Other)
  Sender: FDA-Public Use
  Company Number: PHHY2010JP07569

PATIENT
  Sex: Female
  Weight: 51 kg

DRUGS (18)
  1. SIMULECT [Suspect]
     Indication: RENAL TRANSPLANT
     Dosage: 20 MG, QD
     Dates: start: 20071030, end: 20071030
  2. SIMULECT [Suspect]
     Dosage: 20 MG, QD
     Route: 042
     Dates: start: 20071103, end: 20071103
  3. SANDIMMUN [Suspect]
     Indication: RENAL TRANSPLANT
     Dosage: 150 MG, QD
     Route: 041
     Dates: start: 20071104, end: 20071105
  4. NEORAL [Suspect]
     Indication: RENAL TRANSPLANT
     Dosage: 100 MG TO 300 MG DAILY
     Route: 048
     Dates: start: 20071106, end: 20071217
  5. PROGRAF [Suspect]
     Indication: RENAL TRANSPLANT
     Dosage: UNK UKN, UNK
     Route: 041
     Dates: start: 20071030, end: 20071103
  6. PROGRAF [Suspect]
     Indication: KIDNEY TRANSPLANT REJECTION
     Dosage: UNK UKN, UNK
     Route: 041
     Dates: start: 20071217, end: 20071226
  7. PROGRAF [Suspect]
     Dosage: 2-10 MG DAILY
     Route: 048
     Dates: start: 20071227
  8. CELLCEPT [Suspect]
     Indication: RENAL TRANSPLANT
     Dosage: UNK UKN, UNK
     Route: 048
     Dates: start: 20071030, end: 20080110
  9. SOLU-MEDROL [Suspect]
     Indication: RENAL TRANSPLANT
     Dosage: UNK UKN, UNK
     Route: 042
     Dates: start: 20071030, end: 20071104
  10. SOLU-MEDROL [Suspect]
     Indication: KIDNEY TRANSPLANT REJECTION
     Route: 042
     Dates: start: 20071214, end: 20071228
  11. ORTHOCLONE OKT3 [Suspect]
     Indication: KIDNEY TRANSPLANT REJECTION
     Dosage: 5 MG, QD
     Dates: start: 20071219, end: 20071228
  12. TACROLIMUS [Concomitant]
     Dosage: UNK UKN, UNK
  13. MYCOPHENOLATE MOFETIL [Concomitant]
     Dosage: UNK UKN, UNK
  14. MIZORIBINE [Concomitant]
     Dosage: UNK UKN, UNK
  15. METHYLPREDNISOLONE [Concomitant]
     Dosage: UNK UKN, UNK
  16. MEDROL [Concomitant]
     Indication: RENAL TRANSPLANT
     Dosage: UNK UKN, UNK
     Route: 048
     Dates: start: 20071105
  17. MEDROL [Concomitant]
     Route: 048
  18. TAKEPRON [Concomitant]
     Dosage: 15 MG, UNK
     Route: 048
     Dates: start: 20071030

REACTIONS (9)
  - Cytomegalovirus infection [Recovered/Resolved]
  - Cytomegalovirus test positive [Unknown]
  - Pyrexia [Recovered/Resolved]
  - Histiocytosis haematophagic [Unknown]
  - Chronic allograft nephropathy [Unknown]
  - Kidney transplant rejection [Recovered/Resolved]
  - Proteinuria [Recovering/Resolving]
  - Blood creatinine increased [Unknown]
  - Capillaritis [Unknown]
